FAERS Safety Report 6460673-9 (Version None)
Quarter: 2009Q4

REPORT INFORMATION
  Report Type: 
  Country: None (occurrence: None)
  Receive Date: 20091123
  Receipt Date: 20091106
  Transmission Date: 20100525
  Serious: Yes (Hospitalization)
  Sender: FDA-Public Use
  Company Number: A-NJ2009-25314

PATIENT
  Age: 41 Year
  Sex: Male

DRUGS (8)
  1. TRACLEER [Suspect]
     Indication: PULMONARY ARTERIAL HYPERTENSION
     Dosage: 125 MG, BID, ORAL ; ORAL ; 125 MG, BID, ORAL
     Route: 048
     Dates: start: 20050202, end: 20090429
  2. TRACLEER [Suspect]
     Indication: PULMONARY ARTERIAL HYPERTENSION
     Dosage: 125 MG, BID, ORAL ; ORAL ; 125 MG, BID, ORAL
     Route: 048
     Dates: start: 20090101, end: 20090901
  3. TRACLEER [Suspect]
     Indication: PULMONARY ARTERIAL HYPERTENSION
     Dosage: 125 MG, BID, ORAL ; ORAL ; 125 MG, BID, ORAL
     Route: 048
     Dates: start: 20090925
  4. CIPROFLOXACIN [Suspect]
  5. COUMADIN [Suspect]
  6. FLOLAN [Concomitant]
  7. ATENOLOL [Concomitant]
  8. KEFLEX [Concomitant]

REACTIONS (10)
  - ABDOMINAL PAIN UPPER [None]
  - ACTIVATED PARTIAL THROMBOPLASTIN TIME PROLONGED [None]
  - BILE DUCT OBSTRUCTION [None]
  - CHOLECYSTITIS [None]
  - CHOLELITHIASIS [None]
  - DEVICE RELATED INFECTION [None]
  - EPISTAXIS [None]
  - HEPATITIS ACUTE [None]
  - INTERNATIONAL NORMALISED RATIO INCREASED [None]
  - JAUNDICE [None]
